FAERS Safety Report 5279802-8 (Version None)
Quarter: 2007Q1

REPORT INFORMATION
  Report Type: 
  Country: None (occurrence: None)
  Receive Date: 20061220
  Receipt Date: 20060830
  Transmission Date: 20070707
  Serious: Yes (Other)
  Sender: FDA-Public Use
  Company Number: PHEH2006US08434

PATIENT
  Age: 60 Year
  Sex: Male

DRUGS (11)
  1. AREDIA [Suspect]
     Indication: MULTIPLE MYELOMA
     Dosage: 90 MG, QMO
     Dates: start: 20041223
  2. NEULASTA [Concomitant]
  3. LIPITOR [Concomitant]
  4. CAPTOPRIL [Concomitant]
  5. RENAGEL [Concomitant]
  6. HYDROXYZINE [Concomitant]
  7. PROCRIT [Concomitant]
  8. QUININE SULFATE [Concomitant]
  9. SODIUM BICARBONATE IN PLASTIC CONTAINER [Concomitant]
  10. FLOMAX [Concomitant]
  11. HECTOROL [Concomitant]

REACTIONS (4)
  - BLOOD CREATININE INCREASED [None]
  - BLOOD UREA INCREASED [None]
  - PLATELET COUNT DECREASED [None]
  - RENAL FAILURE CHRONIC [None]
